FAERS Safety Report 10040141 (Version 1)
Quarter: 2014Q1

REPORT INFORMATION
  Report Type: Spontaneous
  Country: US (occurrence: US)
  Receive Date: 20140326
  Receipt Date: 20140326
  Transmission Date: 20141002
  Serious: Yes (Hospitalization, Other)
  Sender: FDA-Public Use
  Company Number: US-MYLANLABS-2014S1006590

PATIENT
  Age: 20 Year
  Sex: Male

DRUGS (2)
  1. CLOZAPINE TABLETS [Suspect]
     Indication: SCHIZOPHRENIA
     Route: 048
     Dates: start: 201311
  2. CLOZAPINE TABLETS [Suspect]
     Indication: SCHIZOPHRENIA
     Route: 048
     Dates: end: 20131206

REACTIONS (7)
  - Pericardial effusion [Recovered/Resolved]
  - Tachycardia [Recovered/Resolved]
  - Pyrexia [Recovered/Resolved]
  - Cough [Recovered/Resolved]
  - Diarrhoea [Recovered/Resolved]
  - White blood cell count increased [Recovered/Resolved]
  - C-reactive protein increased [Recovered/Resolved]
